FAERS Safety Report 14407555 (Version 1)
Quarter: 2018Q1

REPORT INFORMATION
  Report Type: Spontaneous
  Country: US (occurrence: US)
  Receive Date: 20180116
  Receipt Date: 20180116
  Transmission Date: 20180509
  Serious: No
  Sender: FDA-Public Use
  Company Number: None

PATIENT
  Age: 46 Year
  Sex: Female
  Weight: 63 kg

DRUGS (13)
  1. STEROIDS [Concomitant]
     Active Substance: UNSPECIFIED INGREDIENT
  2. SPIRIVA INHALER SPRAY [Concomitant]
  3. PERCOCET [Concomitant]
     Active Substance: ACETAMINOPHEN\OXYCODONE HYDROCHLORIDE
  4. FORMULA 1 [Concomitant]
  5. NUBIOTIX DIGESTIVE ENZYME BLEND [Concomitant]
  6. PANTOPRAZOLE [Concomitant]
     Active Substance: PANTOPRAZOLE
  7. MULTI-VITAMIN [Concomitant]
     Active Substance: .ALPHA.-TOCOPHEROL ACETATE, DL-\ASCORBIC ACID\CYANOCOBALAMIN\FLUORIDE ION\FOLIC ACID\NIACIN\PYRIDOXINE\RIBOFLAVIN\THIAMINE\VITAMIN A\VITAMIN D
  8. LEVAQUIN [Suspect]
     Active Substance: LEVOFLOXACIN
     Indication: BRONCHIOLITIS
     Dosage: ?          QUANTITY:10 TABLET(S);?
     Route: 048
  9. VITAMIN B12 [Concomitant]
     Active Substance: CYANOCOBALAMIN
  10. AMOXICILLIN. [Concomitant]
     Active Substance: AMOXICILLIN
  11. FOLIC ACID. [Concomitant]
     Active Substance: FOLIC ACID
  12. TURMERIC MAX [Concomitant]
  13. VITALIVER LIVER SUPPORT LIQUID HERBAL FORMULA [Concomitant]

REACTIONS (15)
  - Swelling face [None]
  - Burning sensation [None]
  - Insomnia [None]
  - Pain [None]
  - Peripheral swelling [None]
  - Neuralgia [None]
  - Paraesthesia [None]
  - Bronchitis [None]
  - Gait disturbance [None]
  - Pharyngeal oedema [None]
  - Pain in jaw [None]
  - Erythema [None]
  - Mastication disorder [None]
  - Arthralgia [None]
  - Pruritus [None]

NARRATIVE: CASE EVENT DATE: 20180114
